FAERS Safety Report 7230952-6 (Version None)
Quarter: 2011Q1

REPORT INFORMATION
  Report Type: 
  Country: None (occurrence: None)
  Receive Date: 20110118
  Receipt Date: 20101202
  Transmission Date: 20110831
  Serious: No
  Sender: FDA-Public Use
  Company Number: US-BAYER-2010-003836

PATIENT
  Sex: Female

DRUGS (1)
  1. MIRENA [Suspect]
     Indication: PRODUCT USED FOR UNKNOWN INDICATION
     Dosage: 20 MCG/24HR, CONTINUOUS
     Route: 015
     Dates: start: 20100601

REACTIONS (4)
  - PAROSMIA [None]
  - AMENORRHOEA [None]
  - PREGNANCY WITH CONTRACEPTIVE DEVICE [None]
  - NAUSEA [None]
